FAERS Safety Report 4909493-4 (Version None)
Quarter: 2006Q1

REPORT INFORMATION
  Report Type: 
  Country: None (occurrence: None)
  Receive Date: 20060213
  Receipt Date: 20051005
  Transmission Date: 20060701
  Serious: Yes (Death, Hospitalization)
  Sender: FDA-Public Use
  Company Number: US-MERCK-0510USA05396

PATIENT
  Age: 79 Year
  Sex: Female

DRUGS (2)
  1. VIOXX [Suspect]
     Indication: ARTHRITIS
     Route: 048
     Dates: start: 20010101, end: 20010601
  2. EXTRA STRENGTH TYLENOL [Concomitant]
     Route: 065

REACTIONS (11)
  - ANEURYSM RUPTURED [None]
  - ARTERIOSCLEROSIS [None]
  - BLOOD GLUCOSE DECREASED [None]
  - CARDIOVASCULAR DISORDER [None]
  - DEATH [None]
  - DIVERTICULUM [None]
  - HYPERTENSION [None]
  - NECK PAIN [None]
  - NEPHROSCLEROSIS [None]
  - SUBARACHNOID HAEMORRHAGE [None]
  - VENTRICULAR HYPERTROPHY [None]
